FAERS Safety Report 5002196-X (Version None)
Quarter: 2006Q2

REPORT INFORMATION
  Report Type: 
  Country: None (occurrence: None)
  Receive Date: 20060510
  Receipt Date: 20060425
  Transmission Date: 20061013
  Serious: Yes (Death)
  Sender: FDA-Public Use
  Company Number: 2006S1002216

PATIENT
  Age: 54 Year
  Sex: Male

DRUGS (2)
  1. CLOZAPINE [Suspect]
     Indication: SCHIZOPHRENIA, PARANOID TYPE
     Dosage: 50 MG;QD;ORAL
     Route: 048
     Dates: start: 20050601
  2. CLOZAPINE [Suspect]
     Indication: SCHIZOPHRENIA, PARANOID TYPE
     Dosage: 400 MG;BID;ORAL
     Route: 048
     Dates: end: 20050601

REACTIONS (4)
  - ABDOMINAL PAIN UPPER [None]
  - ANEURYSM [None]
  - CHOLELITHIASIS [None]
  - POST PROCEDURAL COMPLICATION [None]
